FAERS Safety Report 11647871 (Version 2)
Quarter: 2015Q4

REPORT INFORMATION
  Report Type: Spontaneous
  Country: US (occurrence: US)
  Receive Date: 20151021
  Receipt Date: 20151124
  Transmission Date: 20160304
  Serious: Yes (Hospitalization)
  Sender: FDA-Public Use
  Company Number: US-BEH-2015054670

PATIENT
  Age: 59 Year
  Sex: Female
  Weight: 105 kg

DRUGS (31)
  1. ALBUTEROL. [Concomitant]
     Active Substance: ALBUTEROL
  2. LORAZEPAM. [Concomitant]
     Active Substance: LORAZEPAM
  3. ZYVOX [Concomitant]
     Active Substance: LINEZOLID
  4. EPIPEN [Concomitant]
     Active Substance: EPINEPHRINE
  5. PRIVIGEN [Suspect]
     Active Substance: HUMAN IMMUNOGLOBULIN G
     Indication: MULTIPLE SCLEROSIS
     Dosage: DAILY X 5 DAYS FOR A TOTAL OF 165 MG.
     Route: 042
     Dates: start: 20151001, end: 20151005
  6. FORTEO [Concomitant]
     Active Substance: TERIPARATIDE
  7. AZITHROMYCIN [Concomitant]
     Active Substance: AZITHROMYCIN ANHYDROUS
  8. PULMICORT TURBUHALER [Concomitant]
     Active Substance: BUDESONIDE
  9. FERROUS SULFATE [Concomitant]
     Active Substance: FERROUS SULFATE\FERROUS SULFATE, DRIED
  10. XOLAIR [Suspect]
     Active Substance: OMALIZUMAB
  11. PEPCID [Concomitant]
     Active Substance: FAMOTIDINE
  12. ROCEPHIN [Concomitant]
     Active Substance: CEFTRIAXONE SODIUM
  13. CEFTIN [Concomitant]
     Active Substance: CEFUROXIME AXETIL
  14. PREDNISONE. [Concomitant]
     Active Substance: PREDNISONE
     Route: 048
  15. LANTUS [Concomitant]
     Active Substance: INSULIN GLARGINE
  16. CYANOCOBALAMIN. [Concomitant]
     Active Substance: CYANOCOBALAMIN
  17. BENADRYL [Concomitant]
     Active Substance: DIPHENHYDRAMINE HYDROCHLORIDE
     Indication: PREMEDICATION
     Route: 042
  18. OXYGEN. [Concomitant]
     Active Substance: OXYGEN
  19. NOVOLOG [Concomitant]
     Active Substance: INSULIN ASPART
  20. HYPER-SAL [Concomitant]
  21. FLONASE [Concomitant]
     Active Substance: FLUTICASONE PROPIONATE
  22. TAMBOCOR [Concomitant]
     Active Substance: FLECAINIDE ACETATE
  23. BACTRIM [Concomitant]
     Active Substance: SULFAMETHOXAZOLE\TRIMETHOPRIM
  24. CEPHALEXIN. [Concomitant]
     Active Substance: CEPHALEXIN
  25. MACROBID [Concomitant]
     Active Substance: NITROFURANTOIN\NITROFURANTOIN MONOHYDRATE
  26. PRIVIGEN [Suspect]
     Active Substance: HUMAN IMMUNOGLOBULIN G
     Indication: MYELITIS TRANSVERSE
     Dosage: DAILY X 5 DAYS FOR A TOTAL OF 165 MG.
     Route: 042
     Dates: start: 20151001, end: 20151005
  27. TYLENOL [Concomitant]
     Active Substance: ACETAMINOPHEN
     Indication: PREMEDICATION
  28. ACETYLCYSTEINE. [Concomitant]
     Active Substance: ACETYLCYSTEINE
  29. HYDROCHLOROTHIAZIDE. [Concomitant]
     Active Substance: HYDROCHLOROTHIAZIDE
  30. ZYRTEC [Concomitant]
     Active Substance: CETIRIZINE HYDROCHLORIDE
  31. CEFEPIME [Concomitant]
     Active Substance: CEFEPIME HYDROCHLORIDE

REACTIONS (8)
  - Deep vein thrombosis [Not Recovered/Not Resolved]
  - Infusion site pain [Recovered/Resolved]
  - Thrombosis [Unknown]
  - Wrong technique in product usage process [Unknown]
  - Wrong technique in product usage process [Unknown]
  - Wrong technique in product usage process [Unknown]
  - Infusion site erythema [Recovered/Resolved]
  - Nausea [Not Recovered/Not Resolved]

NARRATIVE: CASE EVENT DATE: 20151001
